FAERS Safety Report 7308689-4 (Version None)
Quarter: 2011Q1

REPORT INFORMATION
  Report Type: 
  Country: None (occurrence: None)
  Receive Date: 20110223
  Receipt Date: 20110209
  Transmission Date: 20110831
  Serious: Yes (Hospitalization, Other)
  Sender: FDA-Public Use
  Company Number: PHFR2010GB04909

PATIENT
  Sex: Female

DRUGS (7)
  1. DONEPEZIL HCL [Concomitant]
     Indication: DEMENTIA ALZHEIMER'S TYPE
     Dosage: 5MG/DAY
     Route: 048
     Dates: start: 20101116
  2. LAMOTRIGINE [Concomitant]
     Indication: MOOD ALTERED
     Dosage: 50MG/DAY
     Route: 048
  3. LITHIUM CARBONATE [Concomitant]
     Dosage: 400MG/DAY
     Route: 048
  4. CLOZARIL [Suspect]
     Indication: SCHIZOPHRENIA
     Dosage: 100MG MANE AND 300MG NOCTE
     Route: 048
     Dates: start: 20040806
  5. LOFEPRAMINE [Concomitant]
     Indication: MOOD ALTERED
     Dosage: 70MG MANE + 140MG NOCTE
     Route: 048
  6. LEVOTHYROXINE SODIUM [Concomitant]
     Dosage: 50UG/DAY
     Route: 048
  7. CLOZARIL [Suspect]
     Dosage: 300 MG AT NIGHT
     Route: 048

REACTIONS (9)
  - CONTUSION [None]
  - OEDEMA PERIPHERAL [None]
  - DRUG DOSE OMISSION [None]
  - DYSARTHRIA [None]
  - GAIT DISTURBANCE [None]
  - FALL [None]
  - CIRCULATORY COLLAPSE [None]
  - HAND FRACTURE [None]
  - INCORRECT DOSE ADMINISTERED [None]
